FAERS Safety Report 9294340 (Version 2)
Quarter: 2014Q2

REPORT INFORMATION
  Report Type: Spontaneous
  Country: FR (occurrence: FR)
  Receive Date: 20130517
  Receipt Date: 20140404
  Transmission Date: 20141212
  Serious: Yes (Hospitalization)
  Sender: FDA-Public Use
  Company Number: FR-ROCHE-1224381

PATIENT
  Age: 48 Year
  Sex: Female

DRUGS (7)
  1. CELLCEPT [Suspect]
     Indication: PRODUCT USED FOR UNKNOWN INDICATION
     Route: 065
     Dates: start: 201103
  2. TEGELINE [Suspect]
     Indication: PRODUCT USED FOR UNKNOWN INDICATION
     Dosage: LFB, JANUARY TO AUGUST 2010
     Route: 065
     Dates: start: 201001, end: 201008
  3. TEGELINE [Suspect]
     Route: 065
     Dates: start: 201106
  4. CORTANCYL [Concomitant]
  5. THALIDOMIDE [Concomitant]
     Route: 065
     Dates: start: 201010
  6. THALIDOMIDE [Concomitant]
     Route: 065
  7. IMUREL [Concomitant]
     Route: 065
     Dates: start: 201101, end: 201102

REACTIONS (4)
  - Cerebral venous thrombosis [Recovering/Resolving]
  - Aphasia [Recovered/Resolved]
  - Headache [Recovered/Resolved]
  - Epilepsy [Recovered/Resolved]
